FAERS Safety Report 4425183-9 (Version None)
Quarter: 2004Q3

REPORT INFORMATION
  Report Type: 
  Country: None (occurrence: None)
  Receive Date: 20040812
  Receipt Date: 20040812
  Transmission Date: 20050211
  Serious: Yes (Hospitalization)
  Sender: FDA-Public Use
  Company Number: None

PATIENT
  Age: 76 Year
  Sex: Male

DRUGS (13)
  1. IRESSA [Suspect]
     Indication: THYROID CANCER METASTATIC
     Dosage: 250 MG PO QD
     Route: 048
     Dates: start: 20040601, end: 20040715
  2. ASPIRIN [Concomitant]
  3. GLYBURIDE [Concomitant]
  4. M.V.I. [Concomitant]
  5. METFORMIN HCL [Concomitant]
  6. LIPITOR [Concomitant]
  7. LEVOXYL [Concomitant]
  8. WARFARIN SODIUM [Concomitant]
  9. FUROSEMIDE [Concomitant]
  10. KCL POWDER [Concomitant]
  11. PRILOSEC [Concomitant]
  12. BENZACLIN GEL [Concomitant]
  13. LISINOPRIL [Concomitant]

REACTIONS (2)
  - CEREBRAL INFARCTION [None]
  - SPEECH DISORDER [None]
